FAERS Safety Report 6062503-6 (Version None)
Quarter: 2009Q1

REPORT INFORMATION
  Report Type: 
  Country: None (occurrence: None)
  Receive Date: 20090202
  Receipt Date: 20090202
  Transmission Date: 20090719
  Serious: Yes (Hospitalization)
  Sender: FDA-Public Use
  Company Number: None

PATIENT
  Sex: Male
  Weight: 131.3 kg

DRUGS (2)
  1. TAXOTERE [Suspect]
     Dosage: 190 MG
     Dates: end: 20081218
  2. PREDNISONE [Suspect]
     Dosage: 10 MG
     Dates: end: 20081218

REACTIONS (1)
  - THERAPEUTIC AGENT TOXICITY [None]
